FAERS Safety Report 7245255-3 (Version None)
Quarter: 2011Q1

REPORT INFORMATION
  Report Type: 
  Country: None (occurrence: None)
  Receive Date: 20110126
  Receipt Date: 20110119
  Transmission Date: 20110831
  Serious: Yes (Life-Threatening, Hospitalization)
  Sender: FDA-Public Use
  Company Number: KR-CELGENEUS-286-C5013-11011893

PATIENT
  Sex: Male
  Weight: 52.5 kg

DRUGS (15)
  1. THALIDOMIDE [Suspect]
     Indication: MULTIPLE MYELOMA
     Route: 048
     Dates: start: 20101122
  2. THALIDOMIDE [Suspect]
     Route: 048
     Dates: start: 20110103, end: 20110120
  3. MELPHALAN [Suspect]
     Route: 065
     Dates: start: 20110103, end: 20110120
  4. OXYCODONE [Concomitant]
     Indication: CHEST PAIN
     Route: 048
     Dates: start: 20110110
  5. PREDNISONE [Suspect]
     Indication: MULTIPLE MYELOMA
     Route: 065
     Dates: start: 20101122
  6. MELOXICAM [Concomitant]
     Indication: CHEST PAIN
     Route: 048
     Dates: start: 20101108
  7. ASPIRIN [Concomitant]
     Indication: THROMBOSIS PROPHYLAXIS
     Route: 048
     Dates: start: 20101122
  8. MELPHALAN [Suspect]
     Indication: MULTIPLE MYELOMA
     Route: 065
     Dates: start: 20101122
  9. MEGESTROL ACETATE [Concomitant]
     Route: 048
     Dates: start: 20101115
  10. MAGNESIUM OXIDE [Concomitant]
     Indication: CONSTIPATION
     Route: 048
     Dates: start: 20101213, end: 20110102
  11. PREDNISONE [Suspect]
     Route: 065
     Dates: start: 20110103, end: 20110120
  12. BEECOM HEXA [Concomitant]
     Route: 051
     Dates: start: 20110103, end: 20110103
  13. ITRACONAZOLE [Concomitant]
     Route: 048
     Dates: start: 20110110
  14. PANTOPRAZOLE [Concomitant]
     Route: 048
     Dates: start: 20101108
  15. DOMPERIDONE MALEATE [Concomitant]
     Route: 048
     Dates: start: 20101206

REACTIONS (2)
  - PULMONARY EMBOLISM [None]
  - PNEUMONIA [None]
